FAERS Safety Report 25046707 (Version 1)
Quarter: 2025Q1

REPORT INFORMATION
  Report Type: Spontaneous
  Country: DE (occurrence: DE)
  Receive Date: 20250306
  Receipt Date: 20250306
  Transmission Date: 20250408
  Serious: Yes (Life-Threatening, Hospitalization, Other)
  Sender: BRISTOL-MYERS SQUIBB COMPANY
  Company Number: DE-BRISTOL-MYERS SQUIBB COMPANY-2025-029367

PATIENT
  Age: 34 Year
  Sex: Male

DRUGS (2)
  1. IPILIMUMAB [Suspect]
     Active Substance: IPILIMUMAB
     Indication: Malignant melanoma
     Dates: start: 202002
  2. NIVOLUMAB [Suspect]
     Active Substance: NIVOLUMAB
     Indication: Malignant melanoma
     Dates: start: 202002

REACTIONS (16)
  - Headache [Unknown]
  - Metastatic malignant melanoma [Unknown]
  - Metastases to skin [Unknown]
  - Metastases to kidney [Unknown]
  - Hypothalamo-pituitary disorder [Unknown]
  - Hyponatraemia [Unknown]
  - Staphylococcal infection [Unknown]
  - Radiation necrosis [Unknown]
  - Metastases to lung [Unknown]
  - Personality change [Unknown]
  - Aggression [Unknown]
  - Stupor [Unknown]
  - Speech disorder [Unknown]
  - Apraxia [Unknown]
  - Epilepsy [Unknown]
  - Postictal state [Unknown]

NARRATIVE: CASE EVENT DATE: 20201201
